FAERS Safety Report 4708111-8 (Version None)
Quarter: 2005Q3

REPORT INFORMATION
  Report Type: 
  Country: None (occurrence: None)
  Receive Date: 20050707
  Receipt Date: 20050520
  Transmission Date: 20060218
  Serious: Yes (Other)
  Sender: FDA-Public Use
  Company Number: PHBS2005BE07277

PATIENT
  Age: 51 Year
  Sex: Female

DRUGS (6)
  1. ZOMETA [Suspect]
     Indication: METASTASES TO BONE
     Dosage: 4 MG, QMO
     Route: 042
     Dates: start: 20021028, end: 20050301
  2. RADIOTHERAPY [Concomitant]
     Dosage: AT D9 FOR MYELOCOMPRESSION
     Route: 065
     Dates: start: 20040801
  3. TAMOXIFEN [Concomitant]
     Indication: MALIGNANT NEOPLASM PROGRESSION
     Route: 065
     Dates: start: 20021001, end: 20040801
  4. CYCLOPHOSPHAMIDE + EPIRUBICIN [Concomitant]
     Indication: MALIGNANT NEOPLASM PROGRESSION
     Dosage: 6 CYCLES OF CEF
     Route: 065
     Dates: start: 20040801
  5. FLUOROURACIL [Concomitant]
     Indication: MALIGNANT NEOPLASM PROGRESSION
     Dosage: 6 CYCLES OF CEF
     Route: 065
     Dates: start: 20040801
  6. FEMARA [Concomitant]
     Dosage: UNK, UNK
     Route: 065
     Dates: start: 20050501

REACTIONS (16)
  - ACTINOMYCOSIS [None]
  - ARTERIAL THROMBOSIS LIMB [None]
  - BONE DEBRIDEMENT [None]
  - BONE DENSITY DECREASED [None]
  - BONE DISORDER [None]
  - DENTAL CARIES [None]
  - DIABETES MELLITUS [None]
  - EMBOLECTOMY [None]
  - GINGIVITIS [None]
  - INFLAMMATION [None]
  - ISCHAEMIA [None]
  - MOUTH ULCERATION [None]
  - OSTEOMYELITIS [None]
  - OSTEONECROSIS [None]
  - PROSTHESIS USER [None]
  - TOOTH EXTRACTION [None]
